FAERS Safety Report 6455194-3 (Version None)
Quarter: 2009Q4

REPORT INFORMATION
  Report Type: 
  Country: None (occurrence: None)
  Receive Date: 20091119
  Receipt Date: 20091104
  Transmission Date: 20100525
  Serious: Yes (Death)
  Sender: FDA-Public Use
  Company Number: AE 2009-106

PATIENT
  Age: 56 Year
  Sex: Male

DRUGS (13)
  1. FAZACLO ODT [Suspect]
     Indication: SCHIZOPHRENIA
     Dosage: 25MG - 100MG DAILY PO
     Route: 048
     Dates: start: 20090720, end: 20090817
  2. INVEGA [Concomitant]
  3. CLONAZEPAM [Concomitant]
  4. DEPAKOTE ER [Concomitant]
  5. VISTARIL [Concomitant]
  6. DETROL LA [Concomitant]
  7. BISOPROLOL FUMARATE AND HYDROCHLOROTHIAZIDE [Concomitant]
  8. NEXIUM [Concomitant]
  9. PREDNISONE [Concomitant]
  10. METFORMIN HCL [Concomitant]
  11. AVANDIA [Concomitant]
  12. ENALAPRIL [Concomitant]
  13. FLOMAX [Concomitant]

REACTIONS (2)
  - CHOKING [None]
  - MYOCARDIAL INFARCTION [None]
